FAERS Safety Report 10464324 (Version 2)
Quarter: 2014Q4

REPORT INFORMATION
  Report Type: Spontaneous
  Country: JP (occurrence: JP)
  Receive Date: 20140919
  Receipt Date: 20141009
  Transmission Date: 20150528
  Serious: Yes (Other)
  Sender: FDA-Public Use
  Company Number: JP-PFIZER INC-2014257424

PATIENT
  Age: 18 Year
  Sex: Female

DRUGS (1)
  1. SOL-MELCORT [Suspect]
     Active Substance: METHYLPREDNISOLONE SODIUM SUCCINATE
     Indication: SYSTEMIC LUPUS ERYTHEMATOSUS
     Dosage: 1000 MG, 3X/DAY, 3 CYCLES

REACTIONS (1)
  - Pneumonia cytomegaloviral [Recovered/Resolved]
